FAERS Safety Report 10188271 (Version 2)
Quarter: 2014Q2

REPORT INFORMATION
  Report Type: Spontaneous
  Country: US (occurrence: US)
  Receive Date: 20140522
  Receipt Date: 20140522
  Transmission Date: 20141212
  Serious: Yes (Disabling, Other)
  Sender: FDA-Public Use
  Company Number: US-SA-2014SA035764

PATIENT
  Age: 75 Year
  Sex: Female

DRUGS (6)
  1. LANTUS SOLOSTAR [Suspect]
     Indication: TYPE 2 DIABETES MELLITUS
     Dosage: DOSE:75 UNIT(S)
     Route: 065
  2. LANTUS SOLOSTAR [Suspect]
     Indication: TYPE 2 DIABETES MELLITUS
     Dosage: DOSE:78 UNIT(S)
     Route: 065
     Dates: start: 2011
  3. LANTUS SOLOSTAR [Suspect]
     Indication: TYPE 2 DIABETES MELLITUS
     Dosage: DOSE:70 UNIT(S)
     Route: 065
  4. SOLOSTAR [Suspect]
     Indication: DEVICE THERAPY
  5. SOLOSTAR [Suspect]
     Indication: DEVICE THERAPY
  6. SOLOSTAR [Suspect]
     Indication: DEVICE THERAPY
     Dates: start: 2011

REACTIONS (8)
  - Cataract operation [Unknown]
  - Back pain [Unknown]
  - Sciatica [Unknown]
  - Intervertebral disc degeneration [Unknown]
  - Visual acuity reduced [Unknown]
  - Blood glucose abnormal [Unknown]
  - Blood glucose increased [Unknown]
  - Off label use [Unknown]
